FAERS Safety Report 22619825 (Version 1)
Quarter: 2023Q2

REPORT INFORMATION
  Report Type: Spontaneous
  Country: US (occurrence: None)
  Receive Date: 20230616
  Receipt Date: 20230616
  Transmission Date: 20230721
  Serious: Yes (Hospitalization)
  Sender: FDA-Public Use
  Company Number: None

PATIENT
  Age: 60 Year
  Sex: Male
  Weight: 113.5 kg

DRUGS (3)
  1. KIMYRSA [Suspect]
     Active Substance: ORITAVANCIN DIPHOSPHATE
     Indication: Cellulitis
     Dosage: OTHER FREQUENCY : WEEKLY;?
     Route: 041
     Dates: start: 20230404, end: 20230420
  2. 5% Dextrose 250ml [Concomitant]
     Dates: start: 20230404, end: 20230420
  3. 0.9% NaCl 250ml [Concomitant]
     Dates: start: 20230413, end: 20230413

REACTIONS (1)
  - Asthma [None]

NARRATIVE: CASE EVENT DATE: 20230420
